FAERS Safety Report 16088479 (Version 2)
Quarter: 2019Q3

REPORT INFORMATION
  Report Type: Spontaneous
  Country: US (occurrence: US)
  Receive Date: 20190319
  Receipt Date: 20190814
  Transmission Date: 20191004
  Serious: No
  Sender: FDA-Public Use
  Company Number: US-PFIZER INC-2019111650

PATIENT
  Age: 56 Year
  Sex: Female

DRUGS (1)
  1. XELJANZ XR [Suspect]
     Active Substance: TOFACITINIB CITRATE
     Dosage: 11 MG, UNK
     Dates: start: 201902

REACTIONS (4)
  - Nasal congestion [Unknown]
  - Hot flush [Unknown]
  - Hypoacusis [Unknown]
  - Cough [Unknown]

NARRATIVE: CASE EVENT DATE: 201902
